FAERS Safety Report 15717326 (Version 2)
Quarter: 2019Q1

REPORT INFORMATION
  Report Type: Spontaneous
  Country: US (occurrence: US)
  Receive Date: 20181213
  Receipt Date: 20190109
  Transmission Date: 20190417
  Serious: No
  Sender: FDA-Public Use
  Company Number: US-PFIZER INC-2018508628

PATIENT
  Age: 44 Year
  Sex: Male

DRUGS (1)
  1. EUCRISA [Suspect]
     Active Substance: CRISABOROLE
     Indication: HAND DERMATITIS
     Dosage: 1 TO 2 TIMES, DAILY ON AFFECTED AREAS
     Route: 061
     Dates: start: 20181203, end: 20181204

REACTIONS (4)
  - Skin irritation [Unknown]
  - Condition aggravated [Unknown]
  - Rash [Unknown]
  - Inflammation [Unknown]

NARRATIVE: CASE EVENT DATE: 20181203
